FAERS Safety Report 7762913-2 (Version None)
Quarter: 2011Q3

REPORT INFORMATION
  Report Type: 
  Country: None (occurrence: None)
  Receive Date: 20110825
  Receipt Date: 20110630
  Transmission Date: 20111222
  Serious: No
  Sender: FDA-Public Use
  Company Number: 331121

PATIENT
  Age: 69 Year
  Sex: Female

DRUGS (4)
  1. GLYSET /01364001/ (MIGLITOL) [Concomitant]
  2. VICTOZA [Suspect]
     Indication: TYPE 2 DIABETES MELLITUS
     Dosage: UNK, SUBCUTANEOUS
     Route: 058
     Dates: start: 20100101, end: 20110301
  3. MIGLITOL [Concomitant]
  4. METFORMIN HCL [Concomitant]

REACTIONS (4)
  - PANCREATIC DISORDER [None]
  - GLYCOSYLATED HAEMOGLOBIN INCREASED [None]
  - NAUSEA [None]
  - BLOOD GLUCOSE INCREASED [None]
